FAERS Safety Report 6292096-X (Version None)
Quarter: 2009Q3

REPORT INFORMATION
  Report Type: 
  Country: None (occurrence: None)
  Receive Date: 20090731
  Receipt Date: 20071002
  Transmission Date: 20100115
  Serious: Yes (Death)
  Sender: FDA-Public Use
  Company Number: US-ASTRAZENECA-2007UW12259

PATIENT
  Age: 54 Year
  Sex: Male
  Weight: 95.3 kg

DRUGS (19)
  1. SEROQUEL [Suspect]
     Indication: DEPRESSION
     Dosage: 200 TO 500 MG
     Route: 048
     Dates: start: 19970101, end: 20030301
  2. SEROQUEL [Suspect]
     Indication: INSOMNIA
     Dosage: 200 TO 500 MG
     Route: 048
     Dates: start: 19970101, end: 20030301
  3. SEROQUEL [Suspect]
     Indication: POST-TRAUMATIC STRESS DISORDER
     Dosage: 200 TO 500 MG
     Route: 048
     Dates: start: 19970101, end: 20030301
  4. SEROQUEL [Suspect]
     Indication: SCHIZOAFFECTIVE DISORDER DEPRESSIVE TYPE
     Dosage: 200 TO 500 MG
     Route: 048
     Dates: start: 19970101, end: 20030301
  5. SEROQUEL [Suspect]
     Dosage: 200 MG - 600 MG FLUCTUATING
     Route: 048
     Dates: start: 20010921
  6. SEROQUEL [Suspect]
     Dosage: 200 MG - 600 MG FLUCTUATING
     Route: 048
     Dates: start: 20010921
  7. SEROQUEL [Suspect]
     Dosage: 200 MG - 600 MG FLUCTUATING
     Route: 048
     Dates: start: 20010921
  8. SEROQUEL [Suspect]
     Dosage: 200 MG - 600 MG FLUCTUATING
     Route: 048
     Dates: start: 20010921
  9. OXAZEPAM [Concomitant]
     Route: 048
  10. HYDROCHLOROTHIAZIDE [Concomitant]
     Route: 048
  11. LISINOPRIL [Concomitant]
     Dosage: 20 MG, HALF TABLET TWICE A DAY
     Route: 048
  12. METFORMIN [Concomitant]
     Dosage: 500 MG, 2 TABLETS TWICE A DAY
     Route: 048
  13. BUSPAR [Concomitant]
  14. MIRTAZAPINE [Concomitant]
     Indication: DEPRESSION
     Dosage: 30 MG, ONE-HALF TABLET, AT BED TIME
     Route: 048
  15. NIFEDIPINE [Concomitant]
     Route: 048
  16. SERTRALINE HYDROCHLORIDE [Concomitant]
     Dosage: 100 MG, 2 TABLETS EVERY MORNING
     Route: 048
  17. SIMVASTATIN [Concomitant]
     Dosage: 20 MG ONE-HALF, AT BED TIME
     Route: 048
  18. CITALOPRAM HYDROBROMIDE [Concomitant]
     Indication: DEPRESSION
     Dosage: 40 MG, ONE AND ONE HALF TABLET EVERY MORNING
     Route: 048
  19. CITALOPRAM HYDROBROMIDE [Concomitant]
     Indication: ANXIETY
     Dosage: 40 MG, ONE AND ONE HALF TABLET EVERY MORNING
     Route: 048

REACTIONS (3)
  - BLOOD CHOLESTEROL INCREASED [None]
  - DEATH [None]
  - TYPE 2 DIABETES MELLITUS [None]
